FAERS Safety Report 4607208-0 (Version None)
Quarter: 2005Q1

REPORT INFORMATION
  Report Type: 
  Country: None (occurrence: None)
  Receive Date: 20050314
  Receipt Date: 20050301
  Transmission Date: 20050727
  Serious: Yes (Other)
  Sender: FDA-Public Use
  Company Number: BE-SANOFI-SYNTHELABO-A01200501196

PATIENT
  Sex: Female

DRUGS (3)
  1. ELOXATIN [Suspect]
     Indication: RECTAL CANCER METASTATIC
     Route: 042
     Dates: start: 20050117, end: 20050117
  2. ELVORINE [Concomitant]
     Dosage: UNK
     Route: 065
  3. FLUOROURACIL [Concomitant]
     Dosage: UNK
     Route: 065

REACTIONS (10)
  - BLOOD FIBRINOGEN DECREASED [None]
  - CATHETER SITE HAEMORRHAGE [None]
  - ECCHYMOSIS [None]
  - FIBRIN D DIMER INCREASED [None]
  - GINGIVAL BLEEDING [None]
  - INTERNATIONAL NORMALISED RATIO ABNORMAL [None]
  - INTERNATIONAL NORMALISED RATIO INCREASED [None]
  - PROTHROMBIN TIME PROLONGED [None]
  - THROMBIN TIME ABNORMAL [None]
  - THROMBIN TIME PROLONGED [None]
